FAERS Safety Report 6333297-1 (Version None)
Quarter: 2009Q3

REPORT INFORMATION
  Report Type: 
  Country: None (occurrence: None)
  Receive Date: 20090828
  Receipt Date: 20090819
  Transmission Date: 20100115
  Serious: Yes (Death, Other)
  Sender: FDA-Public Use
  Company Number: IT-CELGENEUS-083-CCAZA-09042154

PATIENT

DRUGS (3)
  1. AZACITIDINE INJECTABLE [Suspect]
     Route: 058
  2. VALPROIC ACID [Suspect]
     Dosage: 600-1500MG
     Route: 048
  3. ALLTRANS RETINOIC ACID [Suspect]
     Route: 048

REACTIONS (29)
  - ACUTE MYELOID LEUKAEMIA [None]
  - ALANINE AMINOTRANSFERASE ABNORMAL [None]
  - ANAEMIA [None]
  - BLOOD BILIRUBIN ABNORMAL [None]
  - BLOOD CREATININE ABNORMAL [None]
  - CARDIOVASCULAR DISORDER [None]
  - COAGULOPATHY [None]
  - COLITIS [None]
  - CONFUSIONAL STATE [None]
  - CONJUNCTIVITIS [None]
  - DEATH [None]
  - DIARRHOEA [None]
  - DISEASE PROGRESSION [None]
  - DYSPNOEA [None]
  - FATIGUE [None]
  - HAEMORRHAGE [None]
  - HYPERSENSITIVITY [None]
  - INFECTION [None]
  - MYELODYSPLASTIC SYNDROME TRANSFORMATION [None]
  - NERVOUS SYSTEM DISORDER [None]
  - NEURALGIA [None]
  - NEUTROPENIA [None]
  - PERIPHERAL MOTOR NEUROPATHY [None]
  - PERIPHERAL SENSORY NEUROPATHY [None]
  - PYREXIA [None]
  - RASH [None]
  - SOMNOLENCE [None]
  - STOMATITIS [None]
  - THROMBOCYTOPENIA [None]
